FAERS Safety Report 6968161-8 (Version None)
Quarter: 2010Q3

REPORT INFORMATION
  Report Type: 
  Country: None (occurrence: None)
  Receive Date: 20100907
  Receipt Date: 20100827
  Transmission Date: 20110219
  Serious: Yes (Hospitalization)
  Sender: FDA-Public Use
  Company Number: CA-JNJFOC-20100900266

PATIENT
  Sex: Male
  Weight: 61.8 kg

DRUGS (2)
  1. REMICADE [Suspect]
     Indication: CROHN'S DISEASE
     Route: 042
  2. IMURAN [Concomitant]
     Route: 048

REACTIONS (3)
  - ADHESION [None]
  - HYPERKALAEMIA [None]
  - INTESTINAL OBSTRUCTION [None]
